FAERS Safety Report 10652042 (Version 1)
Quarter: 2014Q4

REPORT INFORMATION
  Report Type: Spontaneous
  Country: US (occurrence: None)
  Receive Date: 20141205
  Receipt Date: 20141205
  Transmission Date: 20150529
  Serious: Yes (Other)
  Sender: FDA-Public Use
  Company Number: 2014SUN02180

PATIENT
  Age: 18 Year
  Sex: Male
  Weight: 145 kg

DRUGS (1)
  1. OXCARBAZEPINE. [Suspect]
     Active Substance: OXCARBAZEPINE
     Indication: SEIZURE
     Dosage: HALF TABLET IN MORNING AND ONE AND HALF IN EVENING

REACTIONS (3)
  - Drug ineffective [None]
  - Emotional disorder [None]
  - Seizure [None]

NARRATIVE: CASE EVENT DATE: 20140903
